FAERS Safety Report 8926308 (Version 2)
Quarter: 2012Q4

REPORT INFORMATION
  Report Type: Report from Study
  Country: US (occurrence: US)
  Receive Date: 20121127
  Receipt Date: 20121224
  Transmission Date: 20130627
  Serious: No
  Sender: FDA-Public Use
  Company Number: US-ASTELLAS-2012US011381

PATIENT
  Age: 14 Year
  Sex: Female
  Weight: 107 kg

DRUGS (5)
  1. TACROLIMUS OINTMENT [Suspect]
     Indication: DERMATITIS ATOPIC
     Dosage: 0.1 %, bid
     Route: 061
     Dates: start: 20071001
  2. LOESTRIN [Concomitant]
     Indication: DYSMENORRHOEA
     Dosage: UNK UNK, UID/QD
     Route: 048
     Dates: start: 20110331
  3. VITAMIN D /00107901/ [Concomitant]
     Indication: VITAMIN D DEFICIENCY
     Dosage: UNK UNK, UID/QD
     Route: 048
     Dates: start: 20110331
  4. PRENATAL VITAMINS                  /02014401/ [Concomitant]
     Indication: PROPHYLAXIS
     Dosage: UNK UNK, UID/QD
     Route: 048
     Dates: start: 20110331
  5. BETAMETHASONE [Concomitant]
     Indication: ECZEMA
     Dosage: UNK UNK, UNK
     Route: 061
     Dates: start: 20110331

REACTIONS (2)
  - Off label use [Unknown]
  - Confluent and reticulate papillomatosis [Recovered/Resolved]
